FAERS Safety Report 18548530 (Version 1)
Quarter: 2020Q4

REPORT INFORMATION
  Report Type: Spontaneous
  Country: GB (occurrence: GB)
  Receive Date: 20201126
  Receipt Date: 20201126
  Transmission Date: 20210114
  Serious: Yes (Hospitalization, Other)
  Sender: FDA-Public Use
  Company Number: GB-AUROBINDO-07-AUR-01455

PATIENT
  Age: 82 Year
  Sex: Female

DRUGS (4)
  1. PARACETAMOL [Suspect]
     Active Substance: ACETAMINOPHEN
     Indication: ANALGESIC THERAPY
     Dosage: 1 GRAM, FOUR TIMES/DAY
     Route: 065
  2. FLUCLOXACILLIN [Suspect]
     Active Substance: FLUCLOXACILLIN
     Indication: DEVICE RELATED INFECTION
     Dosage: UNK
     Route: 042
  3. RIFAMPICIN [Suspect]
     Active Substance: RIFAMPIN
     Indication: DEVICE RELATED INFECTION
     Dosage: UNK
     Route: 065
  4. LEVOFLOXACINE [Suspect]
     Active Substance: LEVOFLOXACIN
     Indication: DEVICE RELATED INFECTION
     Dosage: UNK
     Route: 065

REACTIONS (7)
  - Metabolic encephalopathy [Recovered/Resolved]
  - Depressed level of consciousness [Recovered/Resolved]
  - Nausea [Recovered/Resolved]
  - Metabolic acidosis [Recovered/Resolved]
  - Aminoaciduria [Recovered/Resolved]
  - Ataxia [Recovered/Resolved]
  - Confusional state [Recovered/Resolved]
